FAERS Safety Report 4386192-1 (Version None)
Quarter: 2004Q2

REPORT INFORMATION
  Report Type: 
  Country: None (occurrence: None)
  Receive Date: 20040628
  Receipt Date: 20040628
  Transmission Date: 20050107
  Serious: Yes (Other)
  Sender: FDA-Public Use
  Company Number: None

PATIENT
  Sex: Female

DRUGS (3)
  1. SERZONE [Suspect]
     Indication: GENERALISED ANXIETY DISORDER
     Dosage: 100 MG BID PO
     Route: 048
     Dates: start: 20031101
  2. SERZONE [Suspect]
     Indication: MAJOR DEPRESSION
     Dosage: 100 MG BID PO
     Route: 048
     Dates: start: 20031101
  3. KLONOPIN [Concomitant]

REACTIONS (5)
  - ANXIETY [None]
  - BRUXISM [None]
  - CONFUSIONAL STATE [None]
  - IMPAIRED DRIVING ABILITY [None]
  - PHARMACEUTICAL PRODUCT COMPLAINT [None]
